FAERS Safety Report 6961255-2 (Version None)
Quarter: 2010Q3

REPORT INFORMATION
  Report Type: 
  Country: None (occurrence: None)
  Receive Date: 20100901
  Receipt Date: 20100825
  Transmission Date: 20110219
  Serious: Yes (Other)
  Sender: FDA-Public Use
  Company Number: A0835412A

PATIENT
  Age: 60 Year
  Sex: Female

DRUGS (5)
  1. TYKERB [Suspect]
     Indication: BREAST CANCER RECURRENT
     Dosage: 1250MG PER DAY
     Route: 048
     Dates: start: 20091101
  2. CORTICOSTEROID [Suspect]
     Indication: RASH
     Route: 065
  3. XELODA [Concomitant]
  4. ZYRTEC [Concomitant]
  5. DEXAMETHASONE [Concomitant]

REACTIONS (9)
  - CHAPPED LIPS [None]
  - DERMATITIS ACNEIFORM [None]
  - DIARRHOEA [None]
  - LIP HAEMORRHAGE [None]
  - MOUTH ULCERATION [None]
  - PAIN IN EXTREMITY [None]
  - PAIN OF SKIN [None]
  - SKIN LACERATION [None]
  - VISUAL ACUITY REDUCED [None]
